FAERS Safety Report 5320976-8 (Version None)
Quarter: 2007Q2

REPORT INFORMATION
  Report Type: 
  Country: None (occurrence: None)
  Receive Date: 20070510
  Receipt Date: 20070430
  Transmission Date: 20071010
  Serious: Yes (Other)
  Sender: FDA-Public Use
  Company Number: PHEH2007US06678

PATIENT
  Age: 57 Year
  Sex: Female
  Weight: 61.224 kg

DRUGS (8)
  1. ESTRADERM [Suspect]
     Indication: MENOPAUSAL SYMPTOMS
     Dosage: 1 MG, UNK
     Route: 062
     Dates: start: 19940101, end: 19940101
  2. MEDROXYPROGESTERONE [Suspect]
     Indication: MENOPAUSAL SYMPTOMS
     Dosage: 2.5 MG - 10 MG DAYS 14-25
     Route: 048
     Dates: start: 19950614, end: 19990719
  3. PREMARIN [Suspect]
     Indication: MENOPAUSAL SYMPTOMS
     Dosage: 0.625 MG, QD
     Route: 048
     Dates: start: 19920101, end: 19990101
  4. ESTRACE [Suspect]
     Indication: MENOPAUSE
     Dosage: 1 MG, UNK
     Route: 048
     Dates: start: 19960101, end: 19970101
  5. ESTRADIOL [Suspect]
     Indication: MENOPAUSE
     Dosage: 1-2 MG
     Route: 048
     Dates: start: 19970101, end: 19991011
  6. PROVERA [Suspect]
     Indication: MENOPAUSE
     Dosage: 5 MG, QD
     Route: 048
     Dates: start: 19920101, end: 19990101
  7. CYCRIN [Suspect]
     Indication: MENOPAUSE
     Dosage: 2.5 MG, UNK
     Route: 048
     Dates: start: 19930101, end: 19930101
  8. PRILOSEC [Concomitant]
     Indication: GASTROOESOPHAGEAL REFLUX DISEASE
     Dosage: 20 MG, UNK
     Route: 048

REACTIONS (15)
  - ARTHRALGIA [None]
  - BREAST CANCER STAGE II [None]
  - BREAST DISORDER [None]
  - BREAST INFECTION [None]
  - BREAST MICROCALCIFICATION [None]
  - BREAST RECONSTRUCTION [None]
  - DEPRESSION [None]
  - ELECTROCARDIOGRAM ABNORMAL [None]
  - FIBROCYSTIC BREAST DISEASE [None]
  - LIPOMA [None]
  - LIPOMA EXCISION [None]
  - MASTECTOMY [None]
  - OVARIAN CYST [None]
  - PHYSICAL BREAST EXAMINATION ABNORMAL [None]
  - RADIOTHERAPY [None]
